FAERS Safety Report 24824021 (Version 3)
Quarter: 2025Q1

REPORT INFORMATION
  Report Type: Spontaneous
  Country: US (occurrence: US)
  Receive Date: 20250109
  Receipt Date: 20250317
  Transmission Date: 20250408
  Serious: No
  Sender: Unknown Manufacturer
  Company Number: US-862174955-ML2025-00054

PATIENT
  Age: 81 Year
  Sex: Female

DRUGS (2)
  1. TRAVOPROST [Suspect]
     Active Substance: TRAVOPROST
     Indication: Glaucoma
     Route: 047
     Dates: start: 202412
  2. DORZOLAMIDE [Concomitant]
     Active Substance: DORZOLAMIDE
     Indication: Product used for unknown indication
     Dosage: IN THE MORNING
     Route: 047

REACTIONS (5)
  - Eye irritation [Unknown]
  - Product container issue [Unknown]
  - Extra dose administered [Unknown]
  - Underdose [Unknown]
  - Product dose omission issue [Unknown]
